FAERS Safety Report 9241332 (Version 1)
Quarter: 2013Q1

REPORT INFORMATION
  Report Type: Spontaneous
  Country: US (occurrence: None)
  Receive Date: 20121113
  Receipt Date: 20121113
  Transmission Date: 20140127
  Serious: Yes (Hospitalization)
  Sender: FDA-Public Use
  Company Number: PHEH2011US06043

PATIENT
  Age: 82 Year
  Sex: Female

DRUGS (8)
  1. TRILEPTAL (OXCARBAZEPINE) UNKNOWN [Suspect]
     Indication: TRIGEMINAL NEURALGIA
  2. ENALAPRIL [Concomitant]
  3. COREG (CARVEDILOL) [Concomitant]
  4. NORVASC (AMLODIPINE BESILATE) [Concomitant]
  5. SPIRONOLACTONE (SPIRONOLACTONE) [Concomitant]
  6. PLAVIX (CLOPIDOGREL SULFATE) [Concomitant]
  7. LIPITOR (ATORVASTATIN CALCIUM) [Concomitant]
  8. LIPITOR (ATORVASTATIN CALCIUM) [Concomitant]

REACTIONS (5)
  - Hyponatraemia [None]
  - Drug ineffective [None]
  - Ejection fraction decreased [None]
  - Nausea [None]
  - Vomiting [None]
